FAERS Safety Report 5005837-6 (Version None)
Quarter: 2006Q2

REPORT INFORMATION
  Report Type: 
  Country: None (occurrence: None)
  Receive Date: 20060517
  Receipt Date: 20060517
  Transmission Date: 20061013
  Serious: Yes (Hospitalization)
  Sender: FDA-Public Use
  Company Number: None

PATIENT
  Age: 79 Year
  Sex: Male

DRUGS (7)
  1. TIZANIDINE HCL [Suspect]
     Indication: MUSCLE SPASMS
     Dosage: 4MG TID
     Dates: start: 20051230
  2. METHADONE HCL [Suspect]
     Indication: PAIN
     Dosage: 20MG Q12H
     Dates: start: 20060124
  3. AZATHIOPRINE [Concomitant]
  4. PREDNISONE TAB [Concomitant]
  5. DSS [Concomitant]
  6. LISINOPRIL [Concomitant]
  7. METOPROLOL TARTRATE [Concomitant]

REACTIONS (1)
  - MENTAL STATUS CHANGES [None]
